FAERS Safety Report 9268025 (Version 2)
Quarter: 2014Q2

REPORT INFORMATION
  Report Type: Report from Study
  Country: US (occurrence: US)
  Receive Date: 20130502
  Receipt Date: 20140623
  Transmission Date: 20141212
  Serious: Yes (Other)
  Sender: FDA-Public Use
  Company Number: US-ALEXION-A201201611

PATIENT
  Age: 53 Year
  Sex: Female

DRUGS (2)
  1. SOLIRIS [Suspect]
     Indication: PAROXYSMAL NOCTURNAL HAEMOGLOBINURIA
     Dosage: UNK
     Route: 042
  2. BENADRYL [Concomitant]
     Indication: PREMEDICATION
     Dosage: UNK

REACTIONS (4)
  - Biopsy bone marrow [Recovered/Resolved]
  - Feeling abnormal [Unknown]
  - Musculoskeletal stiffness [Unknown]
  - Trismus [Unknown]
